FAERS Safety Report 4685778-4 (Version None)
Quarter: 2005Q2

REPORT INFORMATION
  Report Type: 
  Country: None (occurrence: None)
  Receive Date: 20050607
  Receipt Date: 20050607
  Transmission Date: 20051028
  Serious: Yes (Other)
  Sender: FDA-Public Use
  Company Number: None

PATIENT
  Sex: Female
  Weight: 73.9363 kg

DRUGS (1)
  1. TRINESSA [Suspect]
     Dosage: ONE PO QD
     Route: 048

REACTIONS (2)
  - DYSPAREUNIA [None]
  - PHARMACEUTICAL PRODUCT COMPLAINT [None]
